FAERS Safety Report 24771832 (Version 1)
Quarter: 2024Q4

REPORT INFORMATION
  Report Type: Spontaneous
  Country: CH (occurrence: CH)
  Receive Date: 20241224
  Receipt Date: 20241224
  Transmission Date: 20250115
  Serious: Yes (Other)
  Sender: NOVARTIS
  Company Number: None

PATIENT
  Age: 49 Year
  Sex: Male
  Weight: 115 kg

DRUGS (8)
  1. TAFINLAR [Suspect]
     Active Substance: DABRAFENIB MESYLATE
     Indication: Melanoma recurrent
     Dosage: 150 MG, Q12H
     Route: 048
     Dates: start: 20240716, end: 20240908
  2. MEKINIST [Suspect]
     Active Substance: TRAMETINIB DIMETHYL SULFOXIDE
     Indication: Melanoma recurrent
     Dosage: 2 MG, QD
     Route: 048
     Dates: start: 20240716, end: 20240908
  3. YERVOY [Suspect]
     Active Substance: IPILIMUMAB
     Indication: Melanoma recurrent
     Dosage: 3 MG/KG, ONCE/SINGLE
     Route: 042
     Dates: start: 20241025, end: 20241025
  4. KEYTRUDA [Suspect]
     Active Substance: PEMBROLIZUMAB
     Indication: Melanoma recurrent
     Dosage: 200 MG, TIW (EVERY 3 WEEKS (5 DOSES))
     Route: 042
     Dates: start: 202405, end: 20240715
  5. OPDIVO [Suspect]
     Active Substance: NIVOLUMAB
     Indication: Melanoma recurrent
     Dosage: 1 MG/KG, ONCE/SINGLE
     Route: 042
     Dates: start: 20241025, end: 20241025
  6. PANTOPRAZOLE [Concomitant]
     Active Substance: PANTOPRAZOLE
     Indication: Product used for unknown indication
     Dosage: 40 MG, PRN (LONG TERM TREATMENT)
     Route: 048
  7. ACETAMINOPHEN [Concomitant]
     Active Substance: ACETAMINOPHEN
     Indication: Product used for unknown indication
     Dosage: 1000 MG, PRN (LONG TERM TREATMENT)
     Route: 048
  8. IBUPROFEN [Concomitant]
     Active Substance: IBUPROFEN
     Indication: Product used for unknown indication
     Dosage: 400 MG, PRN (LONG TERM TREATMENT)
     Route: 048

REACTIONS (3)
  - Uveitis [Recovered/Resolved]
  - Vogt-Koyanagi-Harada disease [Recovered/Resolved]
  - Uveitis [Unknown]

NARRATIVE: CASE EVENT DATE: 20240917
